FAERS Safety Report 18716023 (Version 3)
Quarter: 2021Q2

REPORT INFORMATION
  Report Type: Spontaneous
  Country: PL (occurrence: PL)
  Receive Date: 20210108
  Receipt Date: 20210614
  Transmission Date: 20210717
  Serious: Yes (Life-Threatening, Hospitalization, Other)
  Sender: FDA-Public Use
  Company Number: PL-ACCORD-213796

PATIENT
  Age: 69 Year
  Sex: Female

DRUGS (9)
  1. METOPROLOL. [Interacting]
     Active Substance: METOPROLOL
     Indication: HYPERTENSION
     Dosage: 1 X 1 TABL, TAKING A TOTAL OF 200 MG
     Route: 048
  2. ACETYLSALICYLIC ACID [Interacting]
     Active Substance: ASPIRIN
     Indication: INFECTION
     Dosage: THE PATIENT WAS TAKING FOR THE LAST 3 DAYS DUE TO INFECTION
     Route: 048
  3. KETOPROFEN. [Interacting]
     Active Substance: KETOPROFEN
     Indication: ARTHRALGIA
     Dosage: TAKEN AT TIMES OF SEVERE ARTHRALGIA
     Route: 048
  4. ROSUVASTATIN. [Interacting]
     Active Substance: ROSUVASTATIN
     Indication: HYPERTENSION
     Dosage: 1 X 1 TABL
     Route: 048
  5. PERINDOPRIL/INDAPAMIDE/AMLODIPINE [Interacting]
     Active Substance: AMLODIPINE\INDAPAMIDE\PERINDOPRIL
     Indication: HYPERTENSION
     Dosage: ONE TABLET 1X1 TABL. MORNING
     Route: 048
  6. PROPAFENONE. [Interacting]
     Active Substance: PROPAFENONE
     Indication: ATRIAL FIBRILLATION
     Dosage: IN EMERGENCY, TOOK AN ADDITIONAL 300 MG
     Route: 048
  7. NIMESULIDE/NIMESULIDE BETA?CYCLODEXTRINE [Interacting]
     Active Substance: NIMESULIDE
     Indication: ANALGESIC THERAPY
     Dosage: EVERY 12 HOURS
     Route: 048
  8. DABIGATRAN/DABIGATRAN ETEXILATE [Interacting]
     Active Substance: DABIGATRAN ETEXILATE
     Indication: ATRIAL FIBRILLATION
     Dosage: 2 X 1 TABL
     Route: 048
  9. ITRACONAZOLE. [Suspect]
     Active Substance: ITRACONAZOLE
     Indication: TINEA VERSICOLOUR
     Dosage: 2 X 1 TABL, FOR 7 DAYS AT A DAILY DOSE OF 200 MG
     Route: 048

REACTIONS (4)
  - Off label use [Unknown]
  - Atrioventricular block complete [Recovered/Resolved]
  - Gastrointestinal haemorrhage [Recovered/Resolved]
  - Drug interaction [Unknown]
